FAERS Safety Report 10238511 (Version 1)
Quarter: 2014Q2

REPORT INFORMATION
  Report Type: Report from Study
  Country: US (occurrence: US)
  Receive Date: 20140616
  Receipt Date: 20140616
  Transmission Date: 20141212
  Serious: Yes (Other)
  Sender: FDA-Public Use
  Company Number: US-ROCHE-1416019

PATIENT
  Sex: Female

DRUGS (31)
  1. HERCEPTIN [Suspect]
     Indication: BREAST CANCER
     Route: 065
  2. PERJETA [Suspect]
     Indication: BREAST CANCER METASTATIC
     Route: 065
  3. XELODA [Suspect]
     Indication: BREAST CANCER
     Route: 065
  4. PROVIGIL (UNITED STATES) [Suspect]
     Indication: PRODUCT USED FOR UNKNOWN INDICATION
     Route: 048
  5. TAXOTERE [Concomitant]
  6. TAXOL [Concomitant]
  7. COUMADIN [Concomitant]
     Route: 048
  8. WELLBUTRIN [Concomitant]
     Dosage: 2 TABS AM
     Route: 048
  9. TRAZODONE [Concomitant]
     Dosage: NIGHTLY
     Route: 048
  10. XANAX [Concomitant]
     Route: 048
  11. IBUPROFEN [Concomitant]
     Route: 048
  12. TIZANIDINE [Concomitant]
     Dosage: 1-2 NIGHTLY
     Route: 048
  13. ARIMIDEX [Concomitant]
  14. FASLODEX [Concomitant]
  15. ZOMETA [Concomitant]
  16. HYOSCYAMINE SULFATE [Concomitant]
     Route: 048
  17. DEXAMETHASONE [Concomitant]
     Route: 048
  18. DILAUDID [Concomitant]
     Dosage: 2 TABS QID
     Route: 048
  19. ZOFRAN [Concomitant]
     Route: 048
  20. MIDRIN [Concomitant]
     Dosage: 1-2 CAPSULE DAILY
     Route: 048
  21. LIDOCAINE [Concomitant]
     Route: 065
  22. OMEPRAZOLE [Concomitant]
     Dosage: 2 TAB DAILY
     Route: 048
  23. LASIX [Concomitant]
     Dosage: 1-2 TAB DAILY
     Route: 048
  24. OPIUM TINCTURE [Concomitant]
     Dosage: 10 MG/ML
     Route: 048
  25. IMODIUM [Concomitant]
     Route: 048
  26. LOMOTIL (UNITED STATES) [Concomitant]
     Dosage: 2.5-0.25 MG
     Route: 048
  27. BACLOFEN [Concomitant]
     Route: 048
  28. VIIBRYD [Concomitant]
     Route: 048
  29. VITAMIN B COMPLEX [Concomitant]
     Route: 048
  30. MS CONTIN [Concomitant]
     Route: 048
  31. AMOXICILLIN [Concomitant]
     Route: 048

REACTIONS (19)
  - Palmar-plantar erythrodysaesthesia syndrome [Unknown]
  - Gastrointestinal disorder [Unknown]
  - Neuropathy peripheral [Unknown]
  - Disease progression [Unknown]
  - Metastasis [Unknown]
  - Diarrhoea [Unknown]
  - Dyspnoea [Unknown]
  - Fatigue [Unknown]
  - Pathological fracture [Unknown]
  - Malaise [Unknown]
  - Nausea [Unknown]
  - Neutropenia [Unknown]
  - Anaemia [Unknown]
  - Bone pain [Unknown]
  - Depression [Unknown]
  - Pneumonitis [Unknown]
  - Otitis media [Unknown]
  - Dry mouth [Unknown]
  - Increased tendency to bruise [Unknown]
